FAERS Safety Report 19803153 (Version 1)
Quarter: 2021Q3

REPORT INFORMATION
  Report Type: Spontaneous
  Country: US (occurrence: US)
  Receive Date: 20210903
  Receipt Date: 20210903
  Transmission Date: 20211014
  Serious: No
  Sender: FDA-Public Use
  Company Number: None

PATIENT
  Sex: Female

DRUGS (2)
  1. DEFEROXAMINE MESYL 500MG/ML APP/FRESENIUS KABI [Suspect]
     Active Substance: DEFEROXAMINE MESYLATE
     Indication: SICKLE CELL DISEASE
     Route: 042
     Dates: start: 20210729
  2. DEFERASIROX GRANULES ++ 360MG ASCEND LABORATORIES [Suspect]
     Active Substance: DEFERASIROX
     Indication: SICKLE CELL DISEASE
     Route: 048
     Dates: start: 20210729

REACTIONS (3)
  - Weight fluctuation [None]
  - Therapy interrupted [None]
  - Incorrect dose administered [None]
